FAERS Safety Report 25590669 (Version 1)
Quarter: 2025Q3

REPORT INFORMATION
  Report Type: Spontaneous
  Country: US (occurrence: None)
  Receive Date: 20250721
  Receipt Date: 20250721
  Transmission Date: 20251021
  Serious: Yes (Other)
  Sender: FDA-CTU
  Company Number: None

PATIENT
  Age: 44 Year
  Sex: Female
  Weight: 65.25 kg

DRUGS (10)
  1. TIRZEPATIDE [Suspect]
     Active Substance: TIRZEPATIDE
     Indication: Diabetes mellitus inadequate control
     Route: 050
     Dates: start: 20250630, end: 20250712
  2. TIRZEPATIDE [Suspect]
     Active Substance: TIRZEPATIDE
     Indication: Weight control
  3. EFFEXOR [Concomitant]
     Active Substance: VENLAFAXINE HYDROCHLORIDE
  4. NALTREXONE [Concomitant]
     Active Substance: NALTREXONE
  5. JUNEL [Concomitant]
     Active Substance: ETHINYL ESTRADIOL\NORETHINDRONE ACETATE
  6. LURASIDONE [Concomitant]
     Active Substance: LURASIDONE
  7. VITAMIN D [Concomitant]
     Active Substance: VITAMIN D NOS
  8. MAGNESIUM GLYCINATE [Concomitant]
     Active Substance: MAGNESIUM GLYCINATE
  9. NAC [Concomitant]
  10. SERMORELIN [Suspect]
     Active Substance: SERMORELIN

REACTIONS (6)
  - Therapy non-responder [None]
  - Product label on wrong product [None]
  - Wrong product administered [None]
  - Product prescribing issue [None]
  - Circumstance or information capable of leading to medication error [None]
  - Product administered from unauthorised provider [None]

NARRATIVE: CASE EVENT DATE: 20250713
